FAERS Safety Report 8384681-6 (Version None)
Quarter: 2012Q2

REPORT INFORMATION
  Report Type: 
  Country: None (occurrence: None)
  Receive Date: 20120524
  Receipt Date: 20120514
  Transmission Date: 20120825
  Serious: Yes (Hospitalization, Other)
  Sender: FDA-Public Use
  Company Number: US-ELI_LILLY_AND_COMPANY-US201201000170

PATIENT
  Sex: Female

DRUGS (4)
  1. FORTEO [Suspect]
     Indication: OSTEOPOROSIS
     Dosage: 20 UG, QD
     Route: 065
     Dates: start: 20110101
  2. FORTEO [Suspect]
     Dosage: 20 UG, QD
     Route: 065
  3. FORTEO [Suspect]
     Dosage: 20 UG, QD
  4. OXYGEN [Concomitant]
     Dosage: UNK, OTHER

REACTIONS (10)
  - JOINT FLUID DRAINAGE [None]
  - BONE DISORDER [None]
  - HIP FRACTURE [None]
  - GAIT DISTURBANCE [None]
  - CONFUSIONAL STATE [None]
  - SPINAL FRACTURE [None]
  - BURSITIS [None]
  - PNEUMONIA [None]
  - GENERAL PHYSICAL HEALTH DETERIORATION [None]
  - ARTHRITIS [None]
